FAERS Safety Report 5206147-4 (Version None)
Quarter: 2006Q4

REPORT INFORMATION
  Report Type: 
  Country: None (occurrence: None)
  Receive Date: 20061026
  Receipt Date: 20060913
  Transmission Date: 20070319
  Serious: No
  Sender: FDA-Public Use
  Company Number: 2006112801

PATIENT
  Age: 68 Year
  Sex: Female
  Weight: 59.4212 kg

DRUGS (11)
  1. LYRICA [Suspect]
     Indication: FIBROMYALGIA
     Dosage: 50 MG (50 MG, 1 IN 1 D),ORAL
     Route: 048
     Dates: start: 20060905
  2. ULTRAM [Suspect]
     Indication: PAIN
     Dosage: (25 MG, AS NECESSARY), ORAL
     Route: 048
     Dates: start: 20060905
  3. LOVASTATIN [Concomitant]
  4. FISH OIL (FISH OIL) [Concomitant]
  5. VERAPAMIL [Concomitant]
  6. GUAIFENESIN [Concomitant]
  7. MULTIVITAMIN (MULTIVITAMIN) [Concomitant]
  8. ARGININE (ARGININE) [Concomitant]
  9. CALCIUM (CALCIUM) [Concomitant]
  10. MAGNESIUM (MAGNESIUM) [Concomitant]
  11. VITAMIN E [Concomitant]

REACTIONS (7)
  - AMNESIA [None]
  - BALANCE DISORDER [None]
  - DISORIENTATION [None]
  - DRUG INTERACTION [None]
  - FEELING ABNORMAL [None]
  - PAIN [None]
  - SEDATION [None]
